FAERS Safety Report 16998768 (Version 1)
Quarter: 2019Q4

REPORT INFORMATION
  Report Type: Report from Study
  Country: US (occurrence: US)
  Receive Date: 20191105
  Receipt Date: 20191105
  Transmission Date: 20200122
  Serious: Yes (Other)
  Sender: FDA-Public Use
  Company Number: PHHY2019US194436

PATIENT
  Age: 41 Year
  Sex: Female

DRUGS (1)
  1. GILENYA [Suspect]
     Active Substance: FINGOLIMOD HYDROCHLORIDE
     Indication: MULTIPLE SCLEROSIS
     Dosage: UNK, QD
     Route: 048

REACTIONS (4)
  - Type 2 diabetes mellitus [Unknown]
  - Acute sinusitis [Recovered/Resolved]
  - Hypokalaemia [Unknown]
  - Acute sinusitis [Recovered/Resolved]

NARRATIVE: CASE EVENT DATE: 20190613
